FAERS Safety Report 25312792 (Version 1)
Quarter: 2025Q2

REPORT INFORMATION
  Report Type: Spontaneous
  Country: US (occurrence: None)
  Receive Date: 20250513
  Receipt Date: 20250513
  Transmission Date: 20250717
  Serious: No
  Sender: FDA-CTU
  Company Number: None

PATIENT
  Age: 52 Year
  Sex: Male

DRUGS (2)
  1. GABAPENTIN [Suspect]
     Active Substance: GABAPENTIN
     Dates: start: 20241216
  2. HYDROXYZINE HYDROCHLORIDE [Suspect]
     Active Substance: HYDROXYZINE HYDROCHLORIDE
     Dates: start: 20240903

REACTIONS (6)
  - Hypoxia [None]
  - Respiratory failure [None]
  - Intentional overdose [None]
  - General physical health deterioration [None]
  - Substance abuse [None]
  - Cerebral disorder [None]

NARRATIVE: CASE EVENT DATE: 20250428
